FAERS Safety Report 20974190 (Version 1)
Quarter: 2022Q2

REPORT INFORMATION
  Report Type: Report from Study
  Country: EG (occurrence: EG)
  Receive Date: 20220617
  Receipt Date: 20220617
  Transmission Date: 20220721
  Serious: Yes (Other)
  Sender: FDA-Public Use
  Company Number: EG-NOVARTISPH-NVSC2022EG127926

PATIENT
  Age: 33 Year
  Sex: Male

DRUGS (4)
  1. COSENTYX [Suspect]
     Active Substance: SECUKINUMAB
     Indication: Psoriatic arthropathy
     Dosage: 150 MG (ONE PEN OTHER WEEK)
     Route: 058
     Dates: start: 2019, end: 202106
  2. SOLUPRED [Concomitant]
     Indication: Psoriatic arthropathy
     Dosage: UNK UNK, QD
     Route: 065
     Dates: start: 2019
  3. ARCOXIA [Concomitant]
     Active Substance: ETORICOXIB
     Indication: Psoriatic arthropathy
     Dosage: UNK
     Route: 065
     Dates: start: 2019
  4. METHOTREXATE [Concomitant]
     Active Substance: METHOTREXATE
     Indication: Psoriatic arthropathy
     Dosage: UNK UNK, QW (5 CM EVERY WEEK)
     Route: 058
     Dates: start: 2019

REACTIONS (7)
  - Red blood cell sedimentation rate increased [Recovering/Resolving]
  - Psoriatic arthropathy [Recovering/Resolving]
  - Arthralgia [Unknown]
  - Muscle spasms [Unknown]
  - Joint stiffness [Unknown]
  - Hypothyroidism [Not Recovered/Not Resolved]
  - Disease recurrence [Not Recovered/Not Resolved]

NARRATIVE: CASE EVENT DATE: 20190301
